FAERS Safety Report 22693102 (Version 2)
Quarter: 2024Q3

REPORT INFORMATION
  Report Type: Spontaneous
  Country: US (occurrence: US)
  Receive Date: 20230711
  Receipt Date: 20240722
  Transmission Date: 20241017
  Serious: No
  Sender: ASTELLAS
  Company Number: US-ASTELLAS-2023US004492

PATIENT
  Sex: Male

DRUGS (1)
  1. MYRBETRIQ [Suspect]
     Active Substance: MIRABEGRON
     Indication: Product used for unknown indication
     Dosage: UNK, ONCE DAILY
     Route: 065
     Dates: start: 202301

REACTIONS (2)
  - Neck pain [Unknown]
  - Insomnia [Unknown]

NARRATIVE: CASE EVENT DATE: 20230205
